FAERS Safety Report 9437372 (Version 1)
Quarter: 2013Q3

REPORT INFORMATION
  Report Type: Report from Study
  Country: BR (occurrence: BR)
  Receive Date: 20130802
  Receipt Date: 20130802
  Transmission Date: 20140515
  Serious: Yes (Hospitalization, Other)
  Sender: FDA-Public Use
  Company Number: BR-ROCHE-1256149

PATIENT
  Sex: Female
  Weight: 90 kg

DRUGS (10)
  1. MABTHERA [Suspect]
     Indication: RHEUMATOID ARTHRITIS
     Dosage: DATE OF THE LAST INFUSION ADMINISTERED : 01/MAR/2010.
     Route: 065
     Dates: start: 20090801
  2. PREDNISONE [Concomitant]
  3. FLUOXETIN [Concomitant]
  4. BROMOPRIDE [Concomitant]
  5. OMEPRAZOLE [Concomitant]
  6. AERO RED [Concomitant]
  7. BALCOR [Concomitant]
  8. SIMVASTATIN [Concomitant]
  9. LYRICA [Concomitant]
  10. RIVOTRIL [Concomitant]
     Route: 065

REACTIONS (3)
  - Sinusitis [Recovering/Resolving]
  - Dermatomyositis [Not Recovered/Not Resolved]
  - Lung disorder [Not Recovered/Not Resolved]
